FAERS Safety Report 5534092-3 (Version None)
Quarter: 2007Q4

REPORT INFORMATION
  Report Type: 
  Country: None (occurrence: None)
  Receive Date: 20071129
  Receipt Date: 20071129
  Transmission Date: 20080405
  Serious: Yes (Other)
  Sender: FDA-Public Use
  Company Number: None

PATIENT
  Age: 47 Year
  Sex: Female
  Weight: 76.2043 kg

DRUGS (1)
  1. LAMICTAL [Suspect]
     Indication: MOOD ALTERED
     Dosage: 25 MG, 50MG 1CE DAILY PO
     Route: 048
     Dates: start: 20070821, end: 20070927

REACTIONS (1)
  - MIGRAINE [None]
